FAERS Safety Report 7142186-4 (Version None)
Quarter: 2010Q4

REPORT INFORMATION
  Report Type: 
  Country: None (occurrence: None)
  Receive Date: 20101112
  Receipt Date: 20101004
  Transmission Date: 20110411
  Serious: No
  Sender: FDA-Public Use
  Company Number: 1000016615

PATIENT
  Age: 72 Year
  Sex: Female
  Weight: 95.2 kg

DRUGS (14)
  1. SAVELLA [Suspect]
     Indication: FIBROMYALGIA
     Dosage: 100 MG (50 MG, 2 IN 1 D), ORAL
     Route: 048
     Dates: start: 20100301, end: 20100801
  2. LYRICA [Suspect]
     Indication: FIBROMYALGIA
     Dosage: SEE IMAGE
     Route: 048
     Dates: start: 20100101, end: 20100101
  3. LYRICA [Suspect]
     Indication: FIBROMYALGIA
     Dosage: SEE IMAGE
     Route: 048
     Dates: start: 20100301, end: 20100101
  4. LYRICA [Suspect]
     Indication: FIBROMYALGIA
     Dosage: SEE IMAGE
     Route: 048
     Dates: start: 20100101
  5. VERAPAMIL [Concomitant]
  6. PRAVASTATIN [Concomitant]
  7. ZYRTEC [Concomitant]
  8. ZETIA (EZETIMIBE) (TABLETS) (EZETIMIBE) [Concomitant]
  9. DIOVAN HCT (VALSARTAN, HYDROCHLOROTHIAZIDE) (VALSARTAN, HYDROCHLOROTHI [Concomitant]
  10. WARFARIN (WARFARIN) (TABLETS) (WARFARIN) [Concomitant]
  11. NEXIUM (ESOMEPRAZOLE) (40 MILLIGRAM, CAPSULES) (ESOMEPRAZOLE) [Concomitant]
  12. BUPROPION (BUPROPION) (BUPROPION) [Concomitant]
  13. ALPRAZOLAM (ALPRAZOLAM) (TABLETS) (ALPRAZOLAM) [Concomitant]
  14. CYCLOBENZAPRINE HCL [Concomitant]

REACTIONS (5)
  - DRY MOUTH [None]
  - MEMORY IMPAIRMENT [None]
  - OEDEMA PERIPHERAL [None]
  - PRURITUS [None]
  - WEIGHT INCREASED [None]
